FAERS Safety Report 12248651 (Version 2)
Quarter: 2016Q2

REPORT INFORMATION
  Report Type: Spontaneous
  Country: US (occurrence: US)
  Receive Date: 20160408
  Receipt Date: 20160505
  Transmission Date: 20160815
  Serious: No
  Sender: FDA-Public Use
  Company Number: US-PFIZER INC-2016158896

PATIENT
  Age: 53 Year
  Sex: Male
  Weight: 118 kg

DRUGS (3)
  1. HYDROCODONE [Concomitant]
     Active Substance: HYDROCODONE
     Indication: PAIN
     Dosage: 325 MG, 3X/DAY
  2. GABAPENTIN. [Suspect]
     Active Substance: GABAPENTIN
     Dosage: 600 MG, 3X/DAY
  3. GABAPENTIN. [Suspect]
     Active Substance: GABAPENTIN
     Indication: NEURALGIA
     Dosage: 400 MG, 3X/DAY
     Dates: start: 20160113, end: 20160323

REACTIONS (7)
  - Myalgia [Recovered/Resolved]
  - Condition aggravated [Recovered/Resolved]
  - Weight increased [Not Recovered/Not Resolved]
  - Pain [Unknown]
  - Drug ineffective for unapproved indication [Unknown]
  - Arthralgia [Recovered/Resolved]
  - Back pain [Unknown]
